FAERS Safety Report 6273186-4 (Version None)
Quarter: 2009Q3

REPORT INFORMATION
  Report Type: 
  Country: None (occurrence: None)
  Receive Date: 20090720
  Receipt Date: 20090713
  Transmission Date: 20100115
  Serious: Yes (Other)
  Sender: FDA-Public Use
  Company Number: CN-JNJFOC-20090704297

PATIENT
  Age: 62 Year
  Sex: Male

DRUGS (2)
  1. DAKTARIN [Suspect]
     Route: 061
  2. DAKTARIN [Suspect]
     Indication: TINEA PEDIS
     Dosage: Q.S. (QUANTITY SUFFICIENTY)
     Route: 061

REACTIONS (3)
  - BLISTER [None]
  - PRURITUS [None]
  - RASH ERYTHEMATOUS [None]
